FAERS Safety Report 25440106 (Version 1)
Quarter: 2025Q2

REPORT INFORMATION
  Report Type: Spontaneous
  Country: US (occurrence: US)
  Receive Date: 20250616
  Receipt Date: 20250616
  Transmission Date: 20250716
  Serious: Yes (Death)
  Sender: PFIZER
  Company Number: US-PFIZER INC-202500121751

PATIENT
  Age: 54 Year
  Sex: Female

DRUGS (11)
  1. IBRANCE [Suspect]
     Active Substance: PALBOCICLIB
     Dosage: UNK, DAILY, DAYS 1 TO 21, FOLLOWED BY 7 DAYS OF REST, REPEATED EVERY 28 DAY
     Route: 048
  2. TUMS [Concomitant]
     Active Substance: CALCIUM CARBONATE
  3. FERROUS SULFATE [Concomitant]
     Active Substance: FERROUS SULFATE
  4. ONDANSETRON HYDROCHLORIDE [Concomitant]
     Active Substance: ONDANSETRON HYDROCHLORIDE
  5. SENNA LAXATIVE [Concomitant]
     Active Substance: SENNOSIDES
  6. SYSTANE (HYPROMELLOSE 2910 (4000 MPA.S)) [Concomitant]
     Active Substance: HYPROMELLOSE 2910 (4000 MPA.S)
  7. CALCIUM GLUCONATE [Concomitant]
     Active Substance: CALCIUM GLUCONATE
  8. VITAMIN D3 [Concomitant]
     Active Substance: CHOLECALCIFEROL
  9. TYLENOL [Concomitant]
     Active Substance: ACETAMINOPHEN
  10. FAMOTIDINE [Concomitant]
     Active Substance: FAMOTIDINE
  11. LEVETIRACETAM [Concomitant]
     Active Substance: LEVETIRACETAM

REACTIONS (1)
  - Death [Fatal]

NARRATIVE: CASE EVENT DATE: 20250501
